FAERS Safety Report 14538284 (Version 5)
Quarter: 2018Q2

REPORT INFORMATION
  Report Type: Spontaneous
  Country: US (occurrence: US)
  Receive Date: 20180216
  Receipt Date: 20180622
  Transmission Date: 20180711
  Serious: No
  Sender: FDA-Public Use
  Company Number: US-ASTRAZENECA-2004UW22876

PATIENT
  Age: 694 Month
  Sex: Female
  Weight: 49 kg

DRUGS (23)
  1. CALCIUM [Concomitant]
     Active Substance: CALCIUM
  2. PREDNISONE. [Concomitant]
     Active Substance: PREDNISONE
  3. ATIVAN [Concomitant]
     Active Substance: LORAZEPAM
  4. OMEPRAZOLE. [Suspect]
     Active Substance: OMEPRAZOLE
     Route: 048
  5. POTASSIUM GLUCONATE [Concomitant]
     Active Substance: POTASSIUM GLUCONATE
  6. ALEVE [Concomitant]
     Active Substance: NAPROXEN SODIUM
  7. IMITREX [Concomitant]
     Active Substance: SUMATRIPTAN SUCCINATE
     Route: 048
  8. AZITHROMYCIN ANHYDROUS. [Concomitant]
     Active Substance: AZITHROMYCIN ANHYDROUS
  9. AZITHROMYCIN ANHYDROUS. [Concomitant]
     Active Substance: AZITHROMYCIN ANHYDROUS
  10. ARIMIDEX [Suspect]
     Active Substance: ANASTROZOLE
     Indication: BREAST CANCER
     Route: 048
     Dates: start: 20040914, end: 20041104
  11. POTASSIUM CHLORIDE. [Concomitant]
     Active Substance: POTASSIUM CHLORIDE
  12. ZOMETA [Concomitant]
     Active Substance: ZOLEDRONIC ACID
  13. DIPHENOXYLATE-ATROPINE [Concomitant]
     Active Substance: ATROPINE\DIPHENOXYLATE
  14. CALCIUM CARBONATE. [Concomitant]
     Active Substance: CALCIUM CARBONATE
  15. TAGRISSO [Suspect]
     Active Substance: OSIMERTINIB
     Indication: NON-SMALL CELL LUNG CANCER
     Route: 048
     Dates: start: 20180105
  16. POTASSIUM CHLORIDE. [Concomitant]
     Active Substance: POTASSIUM CHLORIDE
  17. ADVIL [Concomitant]
     Active Substance: IBUPROFEN
  18. OXYCODONE [Concomitant]
     Active Substance: OXYCODONE
  19. FISH OIL [Concomitant]
     Active Substance: FISH OIL
  20. VITAMIN E [Concomitant]
     Active Substance: .ALPHA.-TOCOPHEROL
  21. OXYCODONE HYDROCHLORIDE. [Concomitant]
     Active Substance: OXYCODONE HYDROCHLORIDE
  22. TURMERIC [Concomitant]
     Active Substance: HERBALS\TURMERIC
  23. ASPIRIN. [Concomitant]
     Active Substance: ASPIRIN

REACTIONS (29)
  - Peripheral swelling [Unknown]
  - Oropharyngeal pain [Recovering/Resolving]
  - Migraine [Recovering/Resolving]
  - Hot flush [Recovering/Resolving]
  - Dehydration [Recovering/Resolving]
  - Tearfulness [Unknown]
  - Vomiting [Unknown]
  - Atrophy [Recovering/Resolving]
  - Heart rate increased [Unknown]
  - Tinnitus [Unknown]
  - Dyspnoea [Unknown]
  - Formication [Unknown]
  - Chest discomfort [Unknown]
  - Chest pain [Unknown]
  - Joint swelling [Unknown]
  - Fatigue [Unknown]
  - Pain in extremity [Unknown]
  - Ear pain [Unknown]
  - Insomnia [Unknown]
  - Arthralgia [Unknown]
  - Muscular weakness [Recovering/Resolving]
  - Feeling abnormal [Recovering/Resolving]
  - Sinusitis [Unknown]
  - Acne [Unknown]
  - Diarrhoea [Recovering/Resolving]
  - Hypoaesthesia [Unknown]
  - Neck pain [Recovering/Resolving]
  - Headache [Unknown]
  - Decreased appetite [Recovering/Resolving]

NARRATIVE: CASE EVENT DATE: 200410
